FAERS Safety Report 9357829 (Version 4)
Quarter: 2013Q3

REPORT INFORMATION
  Report Type: Report from Study
  Country: US (occurrence: US)
  Receive Date: 20130620
  Receipt Date: 20130916
  Transmission Date: 20140515
  Serious: Yes (Other)
  Sender: FDA-Public Use
  Company Number: US-BAYER-2013-062762

PATIENT
  Age: 38 Year
  Sex: Female

DRUGS (4)
  1. NEXAVAR [Suspect]
     Indication: SOFT TISSUE CANCER
     Dosage: 400 MG, BID
     Route: 048
     Dates: start: 201305
  2. NEXAVAR [Suspect]
     Indication: SOFT TISSUE CANCER
     Dosage: 400 MG DAILY
     Route: 048
     Dates: start: 201305
  3. NEXAVAR [Suspect]
     Indication: SOFT TISSUE CANCER
     Dosage: 2 TABLETS IN AM,1 TABLET IN PM
     Route: 048
     Dates: start: 20130509, end: 2013
  4. NEXAVAR [Suspect]
     Indication: SOFT TISSUE CANCER
     Dosage: 200 MG EACH MORNING AND 400 MG EACH EVENING
     Route: 048
     Dates: start: 2013

REACTIONS (21)
  - Abasia [None]
  - Epistaxis [None]
  - Fatigue [None]
  - Nausea [None]
  - Acne [None]
  - Haemorrhoids [None]
  - Nasal dryness [None]
  - Rash [None]
  - Palmar-plantar erythrodysaesthesia syndrome [None]
  - Rash [None]
  - Thermohyperaesthesia [None]
  - Tongue ulceration [None]
  - Memory impairment [None]
  - Coordination abnormal [None]
  - Pain in extremity [Not Recovered/Not Resolved]
  - Plantar erythema [Not Recovered/Not Resolved]
  - Skin exfoliation [None]
  - Hyperkeratosis [Not Recovered/Not Resolved]
  - Diarrhoea [None]
  - Abdominal discomfort [None]
  - Off label use [None]
